FAERS Safety Report 9829739 (Version 3)
Quarter: 2016Q3

REPORT INFORMATION
  Report Type: Spontaneous
  Country: DE (occurrence: DE)
  Receive Date: 20140120
  Receipt Date: 20160714
  Transmission Date: 20161109
  Serious: Yes (Hospitalization, Other)
  Sender: FDA-Public Use
  Company Number: DE-BRISTOL-MYERS SQUIBB COMPANY-19990910

PATIENT
  Age: 35 Year
  Sex: Female

DRUGS (3)
  1. TRIAMCINOLONE ACETONIDE. [Suspect]
     Active Substance: TRIAMCINOLONE ACETONIDE
     Indication: LUMBAR SPINAL STENOSIS
     Dosage: 20 MG, UNK
     Route: 065
     Dates: start: 201206
  2. BUPIVACAINE. [Concomitant]
     Active Substance: BUPIVACAINE
     Indication: LUMBAR SPINAL STENOSIS
     Dosage: UNK UNK, QWK
     Route: 065
     Dates: start: 201206
  3. RITONAVIR. [Interacting]
     Active Substance: RITONAVIR
     Indication: HIV INFECTION
     Dosage: 100 MG, BID
     Route: 065
     Dates: start: 200507

REACTIONS (3)
  - Cushing^s syndrome [Unknown]
  - Drug interaction [Unknown]
  - Adrenal suppression [Unknown]
